FAERS Safety Report 14854515 (Version 5)
Quarter: 2020Q1

REPORT INFORMATION
  Report Type: Spontaneous
  Country: US (occurrence: US)
  Receive Date: 20180507
  Receipt Date: 20200304
  Transmission Date: 20200409
  Serious: Yes (Other)
  Sender: FDA-Public Use
  Company Number: US-ASTRAZENECA-2018SE57028

PATIENT
  Age: 760 Month
  Sex: Female
  Weight: 76.2 kg

DRUGS (71)
  1. NEXIUM [Suspect]
     Active Substance: ESOMEPRAZOLE MAGNESIUM
     Indication: GASTROOESOPHAGEAL REFLUX DISEASE
     Dosage: GENERIC UNKNOWN
     Route: 065
  2. PRILOSEC OTC [Suspect]
     Active Substance: OMEPRAZOLE MAGNESIUM
     Dosage: UNK
     Route: 048
     Dates: start: 2005, end: 2015
  3. DEXILANT [Suspect]
     Active Substance: DEXLANSOPRAZOLE
     Indication: GASTROOESOPHAGEAL REFLUX DISEASE
     Route: 065
  4. PREVACID 24 HR [Suspect]
     Active Substance: LANSOPRAZOLE
     Dosage: UNK
     Route: 065
     Dates: start: 2005, end: 2015
  5. FUROSEMIDE. [Concomitant]
     Active Substance: FUROSEMIDE
     Indication: FLUID RETENTION
     Dates: start: 2014
  6. ZEMPLAR [Concomitant]
     Active Substance: PARICALCITOL
     Dates: start: 20120410
  7. PRILOSEC [Suspect]
     Active Substance: OMEPRAZOLE MAGNESIUM
     Indication: GASTROOESOPHAGEAL REFLUX DISEASE
     Dosage: GENERIC
     Route: 065
  8. PREVACID [Suspect]
     Active Substance: LANSOPRAZOLE
     Indication: GASTROOESOPHAGEAL REFLUX DISEASE
     Dosage: 30.0MG UNKNOWN
     Route: 065
     Dates: start: 2005, end: 2015
  9. PREVACID [Suspect]
     Active Substance: LANSOPRAZOLE
     Indication: OESOPHAGEAL DISORDER
     Dosage: 30.0MG UNKNOWN
     Route: 065
     Dates: start: 2005, end: 2015
  10. PREVACID [Suspect]
     Active Substance: LANSOPRAZOLE
     Indication: GASTROOESOPHAGEAL REFLUX DISEASE
     Dosage: 30.0MG UNKNOWN
     Route: 065
     Dates: start: 2005, end: 2015
  11. LANTUS [Concomitant]
     Active Substance: INSULIN GLARGINE
  12. PLAVIX [Concomitant]
     Active Substance: CLOPIDOGREL BISULFATE
  13. ONDANSETRON [Concomitant]
     Active Substance: ONDANSETRON
     Dates: start: 20120311
  14. SULFAMETHOXAZOLE [Concomitant]
     Active Substance: SULFAMETHOXAZOLE
     Dates: start: 20120311
  15. FLUTICASONE PROP [Concomitant]
     Active Substance: FLUTICASONE PROPIONATE
     Dates: start: 20120410
  16. AMOXICILLIN. [Concomitant]
     Active Substance: AMOXICILLIN
     Dates: start: 20120410
  17. NEOMYCIN. [Concomitant]
     Active Substance: NEOMYCIN
     Dates: start: 20120410
  18. CHANTIX [Concomitant]
     Active Substance: VARENICLINE TARTRATE
     Dates: start: 20120410
  19. NEXIUM [Suspect]
     Active Substance: ESOMEPRAZOLE MAGNESIUM
     Indication: GASTROOESOPHAGEAL REFLUX DISEASE
     Dosage: 40.0MG UNKNOWN
     Route: 048
     Dates: start: 2010, end: 2016
  20. NEXIUM [Suspect]
     Active Substance: ESOMEPRAZOLE MAGNESIUM
     Indication: GASTROOESOPHAGEAL REFLUX DISEASE
     Dosage: GENERIC UNKNOWN
     Route: 065
  21. CLONIDINE. [Concomitant]
     Active Substance: CLONIDINE
  22. METOCLOPRAMIDE. [Concomitant]
     Active Substance: METOCLOPRAMIDE
     Dates: start: 20120311
  23. METRONIDAZOLE. [Concomitant]
     Active Substance: METRONIDAZOLE
     Dates: start: 20120410
  24. AMITIZA [Concomitant]
     Active Substance: LUBIPROSTONE
     Dates: start: 20120410
  25. PREVACID [Suspect]
     Active Substance: LANSOPRAZOLE
     Indication: BARRETT^S OESOPHAGUS
     Dosage: 30.0MG UNKNOWN
     Route: 065
     Dates: start: 2005, end: 2015
  26. PREVACID [Suspect]
     Active Substance: LANSOPRAZOLE
     Indication: GASTROOESOPHAGEAL REFLUX DISEASE
     Dosage: 30.0MG UNKNOWN
     Route: 048
     Dates: start: 20080104
  27. LOSARTAN. [Concomitant]
     Active Substance: LOSARTAN
  28. DOXYCYCLINE. [Concomitant]
     Active Substance: DOXYCYCLINE
  29. KETOCONAZOLE. [Concomitant]
     Active Substance: KETOCONAZOLE
  30. CIPROFLOXACIN. [Concomitant]
     Active Substance: CIPROFLOXACIN
  31. METOPROLOL TARTRATE. [Concomitant]
     Active Substance: METOPROLOL TARTRATE
     Indication: HYPERTENSION
     Dates: start: 2008
  32. ESTRACE [Concomitant]
     Active Substance: ESTRADIOL
     Dates: start: 20120410
  33. LEVAQUIN [Concomitant]
     Active Substance: LEVOFLOXACIN
     Dates: start: 20120410
  34. CARAFATE [Concomitant]
     Active Substance: SUCRALFATE
     Dates: start: 20120410
  35. BETHANECHOL CHLORIDE. [Concomitant]
     Active Substance: BETHANECHOL CHLORIDE
     Dates: start: 20120410
  36. AZITHROMYCIN ANHYDROUS. [Concomitant]
     Active Substance: AZITHROMYCIN ANHYDROUS
  37. VITAMIN D2 [Concomitant]
     Active Substance: ERGOCALCIFEROL
     Dates: start: 20120410
  38. TRIAMCINOLONE [Concomitant]
     Active Substance: TRIAMCINOLONE
     Dates: start: 20120410
  39. HIBICLENS [Concomitant]
     Active Substance: CHLORHEXIDINE GLUCONATE
     Dates: start: 20120410
  40. NEXIUM 24HR [Suspect]
     Active Substance: ESOMEPRAZOLE MAGNESIUM
     Dosage: UNK
     Route: 048
     Dates: start: 2005, end: 2015
  41. PREVACID [Suspect]
     Active Substance: LANSOPRAZOLE
     Indication: OESOPHAGEAL DISORDER
     Dosage: 30.0MG UNKNOWN
     Route: 048
     Dates: start: 20080104
  42. PREVACID [Suspect]
     Active Substance: LANSOPRAZOLE
     Indication: BARRETT^S OESOPHAGUS
     Dosage: 30.0MG UNKNOWN
     Route: 048
     Dates: start: 20080104
  43. AMLODIPINE [Concomitant]
     Active Substance: AMLODIPINE BESYLATE
     Dates: start: 20120410
  44. AMOX TR-K [Concomitant]
     Dates: start: 20120410
  45. AZOR [Concomitant]
     Active Substance: AMLODIPINE BESYLATE\OLMESARTAN MEDOXOMIL
     Dates: start: 20120410
  46. BALACET [Concomitant]
     Dates: start: 20120410
  47. FERROUS SULFATE. [Concomitant]
     Active Substance: FERROUS SULFATE
     Dates: start: 20120410
  48. NEXIUM [Suspect]
     Active Substance: ESOMEPRAZOLE MAGNESIUM
     Indication: GASTROOESOPHAGEAL REFLUX DISEASE
     Dosage: UNKNOWN
     Route: 048
     Dates: start: 2005, end: 2015
  49. PREVACID [Suspect]
     Active Substance: LANSOPRAZOLE
     Indication: GASTROOESOPHAGEAL REFLUX DISEASE
     Dosage: 30.0MG UNKNOWN
     Route: 048
     Dates: start: 20080104
  50. ATORVASTATIN [Concomitant]
     Active Substance: ATORVASTATIN
  51. AMLODIPINE BESYLATE. [Concomitant]
     Active Substance: AMLODIPINE BESYLATE
  52. CLINDAMYCIN. [Concomitant]
     Active Substance: CLINDAMYCIN
     Dates: start: 20120311
  53. DOXYCYCLINE HYCLATE. [Concomitant]
     Active Substance: DOXYCYCLINE HYCLATE
     Dates: start: 20120410
  54. METHYLPREDNISOLONE. [Concomitant]
     Active Substance: METHYLPREDNISOLONE
     Dates: start: 20120410
  55. TRAMADOL. [Concomitant]
     Active Substance: TRAMADOL
     Dates: start: 20120410
  56. SODIUM BICARB [Concomitant]
     Active Substance: SODIUM BICARBONATE
     Dates: start: 20120410
  57. MOVIPREP [Concomitant]
     Active Substance: ASCORBIC ACID\POLYETHYLENE GLYCOL 3350\POTASSIUM CHLORIDE\SODIUM ASCORBATE\SODIUM CHLORIDE\SODIUM SULFATE
     Dates: start: 20120410
  58. ASPIRIN. [Concomitant]
     Active Substance: ASPIRIN
     Dates: start: 20120410
  59. ALEVE [Concomitant]
     Active Substance: NAPROXEN SODIUM
     Dates: start: 20120410
  60. LINZESS [Concomitant]
     Active Substance: LINACLOTIDE
     Dates: start: 20120410
  61. NEXIUM [Suspect]
     Active Substance: ESOMEPRAZOLE MAGNESIUM
     Indication: GASTROOESOPHAGEAL REFLUX DISEASE
     Dosage: 40.0MG UNKNOWN
     Route: 048
     Dates: start: 2010, end: 2016
  62. NEXIUM [Suspect]
     Active Substance: ESOMEPRAZOLE MAGNESIUM
     Indication: GASTROOESOPHAGEAL REFLUX DISEASE
     Dosage: UNKNOWN
     Route: 048
     Dates: start: 2005, end: 2015
  63. PRILOSEC [Suspect]
     Active Substance: OMEPRAZOLE MAGNESIUM
     Indication: GASTROOESOPHAGEAL REFLUX DISEASE
     Dosage: UNK
     Route: 048
     Dates: start: 2005, end: 2015
  64. LORTAB [Concomitant]
     Active Substance: ACETAMINOPHEN\HYDROCODONE BITARTRATE
     Indication: PAIN
     Dates: start: 2008
  65. METFORMIN [Concomitant]
     Active Substance: METFORMIN HYDROCHLORIDE
     Indication: DIABETES MELLITUS
     Dates: start: 2009
  66. PEPCID [Concomitant]
     Active Substance: FAMOTIDINE
  67. LISINOPRIL. [Concomitant]
     Active Substance: LISINOPRIL
     Dates: start: 20120410
  68. PROAIR HFA [Concomitant]
     Active Substance: ALBUTEROL SULFATE
     Dates: start: 20120410
  69. NYSTATIN. [Concomitant]
     Active Substance: NYSTATIN
     Dates: start: 20120410
  70. DIFLUCAN [Concomitant]
     Active Substance: FLUCONAZOLE
     Dates: start: 20120410
  71. RENA-VITE [Concomitant]
     Active Substance: ASCORBIC ACID\BIOTIN\CALCIUM PANTOTHENATE\CYANOCOBALAMIN\FOLIC ACID\NIACINAMIDE\PYRIDOXINE HYDROCHLORIDE\RIBOFLAVIN\THIAMINE MONONITRATE
     Dates: start: 20120410

REACTIONS (7)
  - Proteinuria [Not Recovered/Not Resolved]
  - Depression [Unknown]
  - Renal failure [Unknown]
  - Chronic kidney disease [Not Recovered/Not Resolved]
  - Chronic kidney disease-mineral and bone disorder [Unknown]
  - Acute kidney injury [Unknown]
  - Nephrosclerosis [Not Recovered/Not Resolved]

NARRATIVE: CASE EVENT DATE: 201405
